FAERS Safety Report 15058690 (Version 7)
Quarter: 2020Q3

REPORT INFORMATION
  Report Type: Report from Study
  Country: KR (occurrence: KR)
  Receive Date: 20180625
  Receipt Date: 20181112
  Transmission Date: 20201104
  Serious: Yes (Hospitalization)
  Sender: FDA-Public Use
  Company Number: PHHO2018KR007603

PATIENT
  Age: 78 Year
  Sex: Male
  Weight: 66 kg

DRUGS (2)
  1. PDR001 [Suspect]
     Active Substance: SPARTALIZUMAB
     Indication: NON-SMALL CELL LUNG CANCER
     Dosage: 400 MG, Q4W
     Route: 042
     Dates: start: 20170421
  2. RAD 666 / RAD 001A [Suspect]
     Active Substance: EVEROLIMUS
     Indication: NON-SMALL CELL LUNG CANCER
     Dosage: 5 MG, QD
     Route: 048
     Dates: start: 20170421

REACTIONS (1)
  - Cerebral infarction [Recovering/Resolving]

NARRATIVE: CASE EVENT DATE: 20180528
